FAERS Safety Report 4783698-8 (Version None)
Quarter: 2005Q3

REPORT INFORMATION
  Report Type: 
  Country: None (occurrence: None)
  Receive Date: 20050928
  Receipt Date: 20050916
  Transmission Date: 20060218
  Serious: Yes (Other)
  Sender: FDA-Public Use
  Company Number: 2005130497

PATIENT
  Age: 66 Year
  Sex: Male

DRUGS (7)
  1. LIPITOR [Suspect]
     Indication: BLOOD CHOLESTEROL INCREASED
     Dosage: 10 MG (10 MG, 1 IN 1 D), ORAL
     Route: 048
     Dates: start: 20050723
  2. WARFARIN SODIUM [Suspect]
     Indication: ILL-DEFINED DISORDER
  3. PREDNISONE [Concomitant]
  4. LANSOPRAZOLE [Concomitant]
  5. ALENDRONIC ACID (ALENDRONIC ACID) [Concomitant]
  6. SALBUTAMOL (SALBUTAMOL [Concomitant]
  7. TIOTROPIUM BROMIDE (TIOTROPIUM BROMIDE) [Concomitant]

REACTIONS (2)
  - DRUG INTERACTION [None]
  - INTERNATIONAL NORMALISED RATIO DECREASED [None]
